FAERS Safety Report 16371673 (Version 1)
Quarter: 2019Q2

REPORT INFORMATION
  Report Type: Report from Study
  Country: SB (occurrence: SB)
  Receive Date: 20190530
  Receipt Date: 20190530
  Transmission Date: 20190711
  Serious: Yes (Death, Hospitalization, Other)
  Sender: FDA-Public Use
  Company Number: PHHY2017SB168340

PATIENT
  Sex: Female

DRUGS (1)
  1. GLIVEC [Suspect]
     Active Substance: IMATINIB MESYLATE
     Indication: CHRONIC MYELOID LEUKAEMIA
     Dosage: 400 MG, UNK
     Route: 065
     Dates: start: 201707

REACTIONS (11)
  - Haemoglobin increased [Unknown]
  - Cerebral haemorrhage [Fatal]
  - Thrombocytopenia [Not Recovered/Not Resolved]
  - Haemorrhage subcutaneous [Unknown]
  - Asthenia [Unknown]
  - Pancytopenia [Unknown]
  - Anaemia [Unknown]
  - Immune thrombocytopenic purpura [Fatal]
  - White blood cell count decreased [Recovering/Resolving]
  - Gingival bleeding [Unknown]
  - Headache [Unknown]
